FAERS Safety Report 18182465 (Version 1)
Quarter: 2020Q3

REPORT INFORMATION
  Report Type: Spontaneous
  Country: US (occurrence: US)
  Receive Date: 20200821
  Receipt Date: 20200821
  Transmission Date: 20201103
  Serious: Yes (Other)
  Sender: FDA-Public Use
  Company Number: US-ASTRAZENECA-2020SF04418

PATIENT
  Sex: Male

DRUGS (3)
  1. IBRANCE [Suspect]
     Active Substance: PALBOCICLIB
     Indication: BREAST CANCER MALE
     Dosage: 100 MG DAILY FOR 21 DAYS ON AND 7 DAYS OFF UNKNOWN
     Route: 048
     Dates: start: 20200730
  2. IBRANCE [Suspect]
     Active Substance: PALBOCICLIB
     Indication: BREAST CANCER MALE
     Dosage: 125.0MG UNKNOWN
     Route: 048
     Dates: start: 20200522
  3. FASLODEX [Suspect]
     Active Substance: FULVESTRANT
     Route: 030

REACTIONS (3)
  - White blood cell count decreased [Unknown]
  - Tumour marker increased [Not Recovered/Not Resolved]
  - Musculoskeletal pain [Unknown]
